FAERS Safety Report 11331773 (Version 1)
Quarter: 2015Q3

REPORT INFORMATION
  Report Type: Spontaneous
  Country: US (occurrence: US)
  Receive Date: 20150803
  Receipt Date: 20150803
  Transmission Date: 20151125
  Serious: Yes (Hospitalization)
  Sender: FDA-Public Use
  Company Number: US-ELI_LILLY_AND_COMPANY-US200803005537

PATIENT
  Sex: Male

DRUGS (4)
  1. ZYPREXA [Suspect]
     Active Substance: OLANZAPINE
     Dosage: 20 MG, DAILY (1/D)
  2. ZYPREXA [Suspect]
     Active Substance: OLANZAPINE
     Indication: BIPOLAR I DISORDER
     Dosage: 5 MG, UNK
     Route: 048
     Dates: start: 2004
  3. SEROQUEL [Concomitant]
     Active Substance: QUETIAPINE FUMARATE
  4. HALDOL [Concomitant]
     Active Substance: HALOPERIDOL
     Dosage: 5 MG, UNK

REACTIONS (3)
  - Insomnia [Recovered/Resolved]
  - Prescribed overdose [Not Recovered/Not Resolved]
  - Insomnia [Not Recovered/Not Resolved]
